FAERS Safety Report 24693439 (Version 2)
Quarter: 2024Q4

REPORT INFORMATION
  Report Type: Spontaneous
  Country: US (occurrence: BR)
  Receive Date: 20241203
  Receipt Date: 20241224
  Transmission Date: 20250114
  Serious: No
  Sender: TAKEDA
  Company Number: US-TAKEDA-2024TUS120499

PATIENT

DRUGS (1)
  1. VYVANSE [Suspect]
     Active Substance: LISDEXAMFETAMINE DIMESYLATE
     Indication: Product used for unknown indication
     Dosage: UNK

REACTIONS (4)
  - No adverse event [Unknown]
  - Product taste abnormal [Unknown]
  - Product colour issue [Unknown]
  - Poor quality product administered [Unknown]
